FAERS Safety Report 14562549 (Version 5)
Quarter: 2018Q2

REPORT INFORMATION
  Report Type: Spontaneous
  Country: US (occurrence: US)
  Receive Date: 20180222
  Receipt Date: 20180608
  Transmission Date: 20180711
  Serious: Yes (Other)
  Sender: FDA-Public Use
  Company Number: US-DSJP-DSU-2017-144650

PATIENT

DRUGS (3)
  1. BENICAR [Suspect]
     Active Substance: OLMESARTAN MEDOXOMIL
     Indication: PRODUCT USED FOR UNKNOWN INDICATION
     Dosage: 20 MG, QD
     Route: 048
     Dates: start: 20090101, end: 20170601
  2. BENICAR [Suspect]
     Active Substance: OLMESARTAN MEDOXOMIL
     Dosage: 25 MG, UNK
     Dates: start: 20121112
  3. BENICAR HCT [Suspect]
     Active Substance: HYDROCHLOROTHIAZIDE\OLMESARTAN MEDOXOMIL
     Indication: HYPERTENSION
     Dosage: 20-12.5 MG QD
     Dates: start: 20090101, end: 20170601

REACTIONS (9)
  - Gastrooesophageal reflux disease [Unknown]
  - Chronic gastritis [Unknown]
  - Large intestine polyp [Unknown]
  - Haemorrhoids [Unknown]
  - Hypokalaemia [Unknown]
  - Hiatus hernia [Unknown]
  - Gastroduodenitis [Unknown]
  - Diverticulitis [Recovering/Resolving]
  - Helicobacter infection [Unknown]

NARRATIVE: CASE EVENT DATE: 20091109
